FAERS Safety Report 18565868 (Version 2)
Quarter: 2021Q3

REPORT INFORMATION
  Report Type: Spontaneous
  Country: US (occurrence: US)
  Receive Date: 20201201
  Receipt Date: 20210819
  Transmission Date: 20211014
  Serious: Yes (Disabling, Other)
  Sender: FDA-Public Use
  Company Number: US-PURDUE-USA-2020-0178643

PATIENT
  Sex: Female

DRUGS (1)
  1. HYDROCODONE BITARTRATE AND ACETAMINOPHEN [Suspect]
     Active Substance: ACETAMINOPHEN\HYDROCODONE BITARTRATE
     Indication: PRODUCT USED FOR UNKNOWN INDICATION
     Dosage: UNKNOWN
     Route: 048

REACTIONS (16)
  - Disability [Unknown]
  - Amnesia [Unknown]
  - Mood swings [Unknown]
  - Confusional state [Unknown]
  - Dysstasia [Unknown]
  - Depression [Unknown]
  - Anxiety [Unknown]
  - Insomnia [Unknown]
  - Injury [Unknown]
  - Mental disorder [Unknown]
  - Pain [Unknown]
  - Back pain [Unknown]
  - Emotional distress [Unknown]
  - Drug dependence [Unknown]
  - Irritability [Unknown]
  - Arthralgia [Unknown]
